FAERS Safety Report 18070568 (Version 4)
Quarter: 2021Q4

REPORT INFORMATION
  Report Type: Spontaneous
  Country: IT (occurrence: IT)
  Receive Date: 20200727
  Receipt Date: 20211026
  Transmission Date: 20220304
  Serious: Yes (Hospitalization)
  Sender: FDA-Public Use
  Company Number: IT-MINISAL02-626293

PATIENT
  Age: 66 Year
  Sex: Female

DRUGS (8)
  1. LORAZEPAM [Suspect]
     Active Substance: LORAZEPAM
     Indication: Drug abuse
     Dosage: IN TOTAL
     Route: 048
     Dates: start: 20200603, end: 20200603
  2. LORMETAZEPAM [Suspect]
     Active Substance: LORMETAZEPAM
     Indication: Drug abuse
     Dosage: IN TOTAL
     Route: 048
     Dates: start: 20200603, end: 20200603
  3. CLONAZEPAM [Suspect]
     Active Substance: CLONAZEPAM
     Indication: Drug abuse
     Dosage: IN TOTAL
     Route: 048
     Dates: start: 20200603, end: 20200603
  4. QUETIAPINE FUMARATE [Suspect]
     Active Substance: QUETIAPINE FUMARATE
     Indication: Drug abuse
     Dosage: IN TOTAL
     Route: 048
     Dates: start: 20200603, end: 20200603
  5. LITHIUM [Suspect]
     Active Substance: LITHIUM
     Indication: Drug abuse
     Dosage: IN TOTAL
     Route: 048
     Dates: start: 20200603, end: 20200603
  6. TRIMIPRAMINE [Suspect]
     Active Substance: TRIMIPRAMINE
     Indication: Drug abuse
     Dosage: IN TOTAL
     Route: 048
     Dates: start: 20200603, end: 20200603
  7. FLURAZEPAM MONOHYDROCHLORIDE [Suspect]
     Active Substance: FLURAZEPAM MONOHYDROCHLORIDE
     Indication: Drug abuse
     Dosage: IN TOTAL
     Route: 048
     Dates: start: 20200603, end: 20200603
  8. ABILIFY 10 MG ORODISPERSIBLE TABLETS [Concomitant]
     Indication: Bipolar disorder
     Dosage: 10 MILLIGRAM, UNK
     Route: 048

REACTIONS (3)
  - Drug abuse [Recovering/Resolving]
  - Depressed level of consciousness [Recovering/Resolving]
  - Loss of consciousness [Recovering/Resolving]

NARRATIVE: CASE EVENT DATE: 20200603
